FAERS Safety Report 17989731 (Version 1)
Quarter: 2020Q3

REPORT INFORMATION
  Report Type: Spontaneous
  Country: US (occurrence: US)
  Receive Date: 20200707
  Receipt Date: 20200707
  Transmission Date: 20201103
  Serious: Yes (Other)
  Sender: FDA-Public Use
  Company Number: None

PATIENT
  Age: 74 Year
  Sex: Male
  Weight: 126 kg

DRUGS (5)
  1. ATORVASTIN [Concomitant]
     Active Substance: ATORVASTATIN
  2. TYLANOL PM [Concomitant]
  3. MULTIVITAMIN [Concomitant]
     Active Substance: VITAMINS
  4. VIT D [Concomitant]
     Active Substance: VITAMIN D NOS
  5. IRBESARTAN. [Suspect]
     Active Substance: IRBESARTAN
     Indication: BLOOD PRESSURE ABNORMAL
     Dosage: ?          QUANTITY:1 TABLET(S);?
     Route: 048
     Dates: start: 20180615, end: 20200707

REACTIONS (1)
  - Dizziness [None]

NARRATIVE: CASE EVENT DATE: 20180615
